FAERS Safety Report 9514739 (Version 1)
Quarter: 2013Q1

REPORT INFORMATION
  Report Type: Spontaneous
  Country: US (occurrence: None)
  Receive Date: 20130305
  Receipt Date: 20130305
  Transmission Date: 20140127
  Serious: Yes (Other)
  Sender: FDA-Public Use
  Company Number: 163-21880-12112822

PATIENT
  Age: 73 Year
  Sex: Male

DRUGS (9)
  1. REVLIMID (LENALIDOMIDE) (25 MILLIGRAM, CAPSULES) [Suspect]
     Route: 048
     Dates: start: 20121022
  2. SULFAMETHOXAZOLE-TRIMETHOPRIM (BACTRIM ) [Concomitant]
  3. STOOL SOFTENER (DOCUSATE SODIUM) [Concomitant]
  4. SENNA [Concomitant]
  5. MAGNESIUM (MAGNESIUM) [Concomitant]
  6. HYDROMORPHONE HCL (HYDROMORPHONE HYDROCHLORIDE) [Concomitant]
  7. DILTIAZEM HCL (DILTIAZEM HYDROCHLORIDE) [Concomitant]
  8. DEXAMETHASONE (DEXAMETHASONE) [Concomitant]
  9. ACYCLOVIR (ACICLOVIR) (ACICLOVIR) [Concomitant]

REACTIONS (2)
  - Rash vesicular [None]
  - Rash generalised [None]
